FAERS Safety Report 16313318 (Version 1)
Quarter: 2019Q2

REPORT INFORMATION
  Report Type: Spontaneous
  Country: IT (occurrence: IT)
  Receive Date: 20190515
  Receipt Date: 20190515
  Transmission Date: 20190711
  Serious: Yes (Other)
  Sender: FDA-Public Use
  Company Number: IT-BAUSCH-BL-2019-014014

PATIENT
  Age: 63 Year
  Sex: Female

DRUGS (2)
  1. PREDNISOLONE. [Suspect]
     Active Substance: PREDNISOLONE
     Indication: INFLAMMATORY PSEUDOTUMOUR
     Route: 065
  2. ANASTRAZOLE [Concomitant]
     Active Substance: ANASTROZOLE
     Indication: BREAST CANCER

REACTIONS (4)
  - Hypokalaemia [Unknown]
  - Insomnia [Unknown]
  - Osteoporosis [Unknown]
  - Drug ineffective [Unknown]
